FAERS Safety Report 4524063-8 (Version None)
Quarter: 2004Q4

REPORT INFORMATION
  Report Type: 
  Country: None (occurrence: None)
  Receive Date: 20041209
  Receipt Date: 20041108
  Transmission Date: 20050328
  Serious: Yes (Other)
  Sender: FDA-Public Use
  Company Number: 2004-DE-05759GD

PATIENT

DRUGS (1)
  1. ORCIPRENALINE (ORCIPRENALINE SULFATE) [Suspect]
     Dosage: IU
     Route: 064

REACTIONS (2)
  - DRUG EXPOSURE DURING PREGNANCY [None]
  - ENCEPHALOCELE [None]
